FAERS Safety Report 10063241 (Version 1)
Quarter: 2014Q2

REPORT INFORMATION
  Report Type: Spontaneous
  Country: NL (occurrence: NL)
  Receive Date: 20140407
  Receipt Date: 20140407
  Transmission Date: 20141212
  Serious: Yes (Hospitalization, Disabling, Other)
  Sender: FDA-Public Use
  Company Number: PHHY2014NL038430

PATIENT
  Sex: Female

DRUGS (2)
  1. SANDOSTATIN LAR [Suspect]
     Indication: POSTURAL ORTHOSTATIC TACHYCARDIA SYNDROME
     Dosage: UNK UKN, QMO
  2. SANDOSTATIN LAR [Suspect]
     Indication: OFF LABEL USE
     Dosage: UNK (HIGHER DOSE OF SANDOSTATIN LAR)

REACTIONS (18)
  - Feeling abnormal [Unknown]
  - Malaise [Unknown]
  - Abasia [Unknown]
  - Disease recurrence [Unknown]
  - Postural orthostatic tachycardia syndrome [Not Recovered/Not Resolved]
  - Chest discomfort [Not Recovered/Not Resolved]
  - Pain [Unknown]
  - Nasopharyngitis [Unknown]
  - Chest pain [Unknown]
  - Decreased appetite [Unknown]
  - Fatigue [Unknown]
  - Therapeutic response decreased [Unknown]
  - Heart rate irregular [Unknown]
  - Heart rate increased [Unknown]
  - Dyspnoea [Unknown]
  - Speech disorder [Unknown]
  - Disturbance in attention [Unknown]
  - Daydreaming [Unknown]
